FAERS Safety Report 15946313 (Version 8)
Quarter: 2020Q1

REPORT INFORMATION
  Report Type: Spontaneous
  Country: US (occurrence: US)
  Receive Date: 20190212
  Receipt Date: 20200113
  Transmission Date: 20200409
  Serious: Yes (Hospitalization, Other)
  Sender: FDA-Public Use
  Company Number: US-B.I. PHARMACEUTICALS,INC./RIDGEFIELD-2019-BI-005509

PATIENT
  Age: 85 Year
  Sex: Male

DRUGS (1)
  1. SPIRIVA [Suspect]
     Active Substance: TIOTROPIUM BROMIDE MONOHYDRATE
     Indication: CHRONIC OBSTRUCTIVE PULMONARY DISEASE
     Route: 055
     Dates: start: 201807

REACTIONS (9)
  - Muscle spasms [Recovered/Resolved]
  - Hip fracture [Not Recovered/Not Resolved]
  - Overdose [Unknown]
  - Lung neoplasm malignant [Not Recovered/Not Resolved]
  - Fall [Recovered/Resolved]
  - Product quality issue [Unknown]
  - Overdose [Recovered/Resolved]
  - Delirium [Unknown]
  - Product physical issue [Unknown]

NARRATIVE: CASE EVENT DATE: 20181015
